FAERS Safety Report 6051767-0 (Version None)
Quarter: 2009Q1

REPORT INFORMATION
  Report Type: 
  Country: None (occurrence: None)
  Receive Date: 20090126
  Receipt Date: 20081215
  Transmission Date: 20090719
  Serious: Yes (Death)
  Sender: FDA-Public Use
  Company Number: US-PFIZER INC-2008153375

PATIENT
  Age: 8 Year
  Sex: Female

DRUGS (2)
  1. HYDROXYZINE HCL [Suspect]
  2. CHLORAL HYDRATE [Suspect]

REACTIONS (1)
  - DRUG TOXICITY [None]
